FAERS Safety Report 5515604-2 (Version None)
Quarter: 2007Q4

REPORT INFORMATION
  Report Type: 
  Country: None (occurrence: None)
  Receive Date: 20071113
  Receipt Date: 20070626
  Transmission Date: 20080405
  Serious: No
  Sender: FDA-Public Use
  Company Number: A0660252A

PATIENT
  Age: 67 Year
  Sex: Female

DRUGS (3)
  1. COREG [Suspect]
     Dosage: 25MG TWICE PER DAY
     Route: 048
     Dates: start: 20060401, end: 20061101
  2. SPIRONOLACTONE [Concomitant]
  3. LISINOPRIL [Concomitant]

REACTIONS (1)
  - PLATELET COUNT DECREASED [None]
